FAERS Safety Report 8781252 (Version 1)
Quarter: 2012Q4

REPORT INFORMATION
  Report Type: Report from Study
  Country: US (occurrence: US)
  Receive Date: 20120913
  Receipt Date: 20120913
  Transmission Date: 20130627
  Serious: No
  Sender: FDA-Public Use
  Company Number: US-VERTEX PHARMACEUTICAL INC.-AE-2012-007863

PATIENT
  Age: 48 Year
  Sex: Female
  Weight: 88.6 kg

DRUGS (19)
  1. INCIVEK [Suspect]
     Indication: HEPATITIS C
     Route: 048
     Dates: start: 20120517
  2. PEGASYS [Concomitant]
     Indication: HEPATITIS C
     Route: 058
     Dates: start: 20120517
  3. RIBAVIRIN [Concomitant]
     Indication: HEPATITIS C
     Route: 048
     Dates: start: 20120517
  4. CYCLOBENZAPRINE [Concomitant]
  5. DICYCLOMINE [Concomitant]
  6. FENTANYL [Concomitant]
  7. LACTULOSE [Concomitant]
  8. LEVOTHYROXIN [Concomitant]
  9. LYRICA [Concomitant]
  10. OMEPRAZOLE [Concomitant]
  11. ONDANSETRON [Concomitant]
  12. PERCOCET [Concomitant]
  13. TRAZODONE [Concomitant]
  14. XANAX [Concomitant]
  15. XIFAXAN [Concomitant]
  16. ZANAFLEX [Concomitant]
  17. ZYRTEC-D [Concomitant]
  18. REGLAN [Concomitant]
  19. HYDROXYZ HCL [Concomitant]

REACTIONS (12)
  - Dysphagia [Unknown]
  - Injection site erythema [Unknown]
  - Oropharyngeal pain [Unknown]
  - Stomatitis [Unknown]
  - Abdominal distension [Unknown]
  - Blood thyroid stimulating hormone increased [Unknown]
  - Fatigue [Unknown]
  - Lethargy [Unknown]
  - Rash [Unknown]
  - Anaemia [Unknown]
  - Nausea [Unknown]
  - Pruritus [Unknown]
